FAERS Safety Report 9278797 (Version 1)
Quarter: 2013Q2

REPORT INFORMATION
  Report Type: Spontaneous
  Country: US (occurrence: US)
  Receive Date: 20130508
  Receipt Date: 20130508
  Transmission Date: 20140414
  Serious: No
  Sender: FDA-Public Use
  Company Number: US-PFIZER INC-2013139947

PATIENT
  Age: 63 Year
  Sex: Female
  Weight: 47.62 kg

DRUGS (4)
  1. ALPRAZOLAM [Suspect]
     Indication: ANXIETY
     Dosage: 0.25 MG, 2X/DAY
     Dates: start: 20130222
  2. AMOXICILLIN [Suspect]
     Indication: MALAISE
     Dosage: 1000 MG, 2X/DAY
     Dates: start: 20130327, end: 201304
  3. ESTRADIOL [Suspect]
     Indication: HYSTERECTOMY
     Dosage: 0.1 MG, 2X/WEEK
  4. MIRTAZAPINE [Suspect]
     Indication: ANXIETY
     Dosage: 30 MG, DAILY

REACTIONS (3)
  - Off label use [Recovered/Resolved]
  - Drug ineffective for unapproved indication [Unknown]
  - Malaise [Not Recovered/Not Resolved]
